FAERS Safety Report 5765707-2 (Version None)
Quarter: 2008Q2

REPORT INFORMATION
  Report Type: 
  Country: None (occurrence: None)
  Receive Date: 20080605
  Receipt Date: 20080527
  Transmission Date: 20081010
  Serious: Yes (Death)
  Sender: FDA-Public Use
  Company Number: GXKR2008KR04830

PATIENT
  Age: 37 Year
  Sex: Male

DRUGS (4)
  1. CYCLOSPORINE [Suspect]
     Indication: PROPHYLAXIS AGAINST GRAFT VERSUS HOST DISEASE
  2. PREDNISOLONE [Concomitant]
  3. BUSULFAN (BUSULFAN) [Concomitant]
  4. CYTOXAN [Concomitant]

REACTIONS (19)
  - AGITATION [None]
  - AZOTAEMIA [None]
  - CENTRAL PONTINE MYELINOLYSIS [None]
  - CEREBRAL DISORDER [None]
  - DEMYELINATION [None]
  - EYE MOVEMENT DISORDER [None]
  - GRAFT VERSUS HOST DISEASE [None]
  - HAEMODIALYSIS [None]
  - HEPATIC FUNCTION ABNORMAL [None]
  - HYPERBILIRUBINAEMIA [None]
  - IMMUNOSUPPRESSANT DRUG LEVEL INCREASED [None]
  - INTRAVENTRICULAR HAEMORRHAGE [None]
  - MENTAL DISORDER [None]
  - NEUROLOGICAL SYMPTOM [None]
  - PSYCHOTIC DISORDER [None]
  - SKIN EXFOLIATION [None]
  - SOMNOLENCE [None]
  - THERAPEUTIC RESPONSE DECREASED [None]
  - URINE OUTPUT DECREASED [None]
